FAERS Safety Report 7719503-7 (Version None)
Quarter: 2011Q3

REPORT INFORMATION
  Report Type: 
  Country: None (occurrence: None)
  Receive Date: 20110830
  Receipt Date: 20110822
  Transmission Date: 20111222
  Serious: Yes (Hospitalization)
  Sender: FDA-Public Use
  Company Number: BR-MEDIMMUNE-MEDI-0013496

PATIENT
  Sex: Male
  Weight: 5.2 kg

DRUGS (7)
  1. RANITIDINE [Concomitant]
     Route: 048
     Dates: start: 20110113
  2. SIMILAC [Concomitant]
     Route: 048
     Dates: start: 20110405
  3. FENOTEROL W/IPRATROPIUM [Concomitant]
     Dosage: 2/10 DROPS, EVERY 4 HOURS
     Dates: start: 20110113
  4. FERROUS SULFATE TAB [Concomitant]
     Indication: VITAMIN SUPPLEMENTATION
     Route: 048
     Dates: start: 20110113
  5. SYNAGIS [Suspect]
     Route: 030
     Dates: start: 20110608, end: 20110608
  6. DOMPERIDONE [Concomitant]
     Route: 048
     Dates: start: 20110113
  7. PROTOVIT [Concomitant]
     Indication: VITAMIN SUPPLEMENTATION
     Route: 048
     Dates: start: 20110113

REACTIONS (1)
  - RESPIRATORY ARREST [None]
